FAERS Safety Report 9325224 (Version 3)
Quarter: 2013Q3

REPORT INFORMATION
  Report Type: Spontaneous
  Country: DE (occurrence: DE)
  Receive Date: 20130604
  Receipt Date: 20130913
  Transmission Date: 20140515
  Serious: Yes (Other)
  Sender: FDA-Public Use
  Company Number: DE-AMGEN-DEUSP2013038899

PATIENT
  Age: 69 Year
  Sex: Female

DRUGS (4)
  1. ENBREL [Suspect]
     Indication: RHEUMATOID ARTHRITIS
     Dosage: 50 MG, WEEKLY (INJECTION)
     Route: 065
     Dates: start: 20130426, end: 20130502
  2. ENBREL [Suspect]
     Dosage: 50 MG, WEEKLY (INJECTION)
     Route: 065
     Dates: start: 20130523
  3. CORTISONE [Concomitant]
     Dosage: 7.5 MG, UNK
  4. TILIDINE [Concomitant]
     Dosage: UNK, AS NEEDED

REACTIONS (3)
  - Rheumatoid arthritis [Unknown]
  - Tooth disorder [Unknown]
  - Liver function test abnormal [Unknown]
